FAERS Safety Report 6206441-4 (Version None)
Quarter: 2009Q2

REPORT INFORMATION
  Report Type: 
  Country: None (occurrence: None)
  Receive Date: 20090528
  Receipt Date: 20090520
  Transmission Date: 20091009
  Serious: Yes (Disabling, Other)
  Sender: FDA-Public Use
  Company Number: PHHO2008DE04359

PATIENT
  Sex: Female
  Weight: 70.9 kg

DRUGS (1)
  1. ZOLEDRONIC ACID [Suspect]
     Indication: BREAST CANCER
     Dosage: 4 MG
     Route: 042
     Dates: start: 20061211

REACTIONS (4)
  - ABSCESS JAW [None]
  - ORTHODONTIC PROCEDURE [None]
  - OSTEONECROSIS [None]
  - TOOTH EXTRACTION [None]
